FAERS Safety Report 9254008 (Version 3)
Quarter: 2013Q3

REPORT INFORMATION
  Report Type: Spontaneous
  Country: GB (occurrence: GB)
  Receive Date: 20130425
  Receipt Date: 20130715
  Transmission Date: 20140515
  Serious: Yes (Other)
  Sender: FDA-Public Use
  Company Number: GB-MPIJNJ-2013-02925

PATIENT
  Sex: 0

DRUGS (11)
  1. VELCADE [Suspect]
     Indication: PLASMA CELL MYELOMA
     Dosage: UNK
     Route: 058
     Dates: start: 20130318
  2. DEXAMETHASONE [Suspect]
     Indication: PLASMA CELL MYELOMA
     Dosage: UNK
     Dates: start: 20130318
  3. CYCLOPHOSPHAMIDE [Concomitant]
     Dosage: UNK
     Dates: start: 20130422
  4. ALLOPURINOL [Concomitant]
     Dosage: 300 MG, UNK
     Dates: start: 20130318
  5. METOCLOPRAMIDE [Concomitant]
     Dosage: UNK
     Dates: start: 20130318
  6. LANSOPRAZOLE [Concomitant]
     Dosage: 30 MG, UNK
     Dates: start: 20130318
  7. FLUCONAZOLE [Concomitant]
     Dosage: 50 MG, UNK
     Dates: start: 20130318
  8. ACICLOVIR [Concomitant]
     Dosage: 400 MG, UNK
     Dates: start: 20130318
  9. CO-TRIMOXAZOLE [Concomitant]
     Dosage: 480 MG, UNK
     Dates: start: 20130318
  10. ENOXAPARIN [Concomitant]
     Dosage: 40 MG, UNK
     Dates: start: 20130318
  11. ZOPICLONE [Concomitant]
     Dosage: UNK
     Dates: start: 20130321

REACTIONS (3)
  - Bone marrow failure [Unknown]
  - Glucose tolerance test abnormal [Unknown]
  - Liver function test abnormal [Unknown]
